FAERS Safety Report 23021275 (Version 3)
Quarter: 2023Q4

REPORT INFORMATION
  Report Type: Report from Study
  Country: RS (occurrence: RS)
  Receive Date: 20231003
  Receipt Date: 20231018
  Transmission Date: 20240110
  Serious: Yes (Other)
  Sender: FDA-Public Use
  Company Number: RS-Merck Healthcare KGaA-2023477885

PATIENT
  Sex: Female
  Weight: 3 kg

DRUGS (1)
  1. REBIF [Suspect]
     Active Substance: INTERFERON BETA-1A
     Indication: Relapsing-remitting multiple sclerosis

REACTIONS (3)
  - Premature baby [Recovered/Resolved]
  - Blood thyroid stimulating hormone increased [Recovered/Resolved]
  - Foetal exposure during pregnancy [Recovered/Resolved]
